FAERS Safety Report 5474823-4 (Version None)
Quarter: 2007Q4

REPORT INFORMATION
  Report Type: 
  Country: None (occurrence: None)
  Receive Date: 20071002
  Receipt Date: 20070921
  Transmission Date: 20080405
  Serious: Yes (Other)
  Sender: FDA-Public Use
  Company Number: JP-MERCK-0707USA04509

PATIENT
  Age: 39 Year
  Sex: Male
  Weight: 76 kg

DRUGS (24)
  1. INDOMETHACIN [Suspect]
     Indication: SPONDYLITIS
     Route: 054
     Dates: start: 20070410
  2. INDOMETHACIN [Suspect]
     Indication: EXTRADURAL ABSCESS
     Route: 054
     Dates: start: 20070410
  3. DORAL [Suspect]
     Indication: ADJUSTMENT DISORDER
     Route: 048
     Dates: start: 20070508, end: 20070614
  4. LEVOFLOXACIN [Suspect]
     Route: 065
     Dates: start: 20070517, end: 20070610
  5. LEVOFLOXACIN [Suspect]
     Route: 065
     Dates: start: 20070614
  6. PANSPORIN [Suspect]
     Indication: SPONDYLITIS
     Route: 042
     Dates: start: 20070327, end: 20070412
  7. PANSPORIN [Suspect]
     Indication: EXTRADURAL ABSCESS
     Route: 042
     Dates: start: 20070327, end: 20070412
  8. DEPAS [Concomitant]
     Indication: INSOMNIA
     Route: 048
     Dates: start: 20070406, end: 20070614
  9. LENDORMIN [Concomitant]
     Indication: INSOMNIA
     Route: 048
     Dates: start: 20070403, end: 20070614
  10. ROHYPNOL [Concomitant]
     Indication: ADJUSTMENT DISORDER
     Route: 065
     Dates: start: 20070508, end: 20070614
  11. RISPERDAL [Concomitant]
     Indication: ADJUSTMENT DISORDER
     Route: 048
     Dates: start: 20070522, end: 20070614
  12. DALACIN [Concomitant]
     Indication: SPONDYLITIS
     Route: 042
     Dates: start: 20070507, end: 20070611
  13. DALACIN [Concomitant]
     Indication: EXTRADURAL ABSCESS
     Route: 042
     Dates: start: 20070507, end: 20070611
  14. RESLIN [Concomitant]
     Indication: ADJUSTMENT DISORDER
     Route: 048
     Dates: start: 20070515, end: 20070614
  15. RESLIN [Concomitant]
     Indication: EXTRADURAL ABSCESS
     Route: 048
     Dates: start: 20070515, end: 20070614
  16. VOLTAREN [Concomitant]
     Indication: SPONDYLITIS
     Route: 054
     Dates: start: 20070403
  17. VOLTAREN [Concomitant]
     Indication: EXTRADURAL ABSCESS
     Route: 054
     Dates: start: 20070403
  18. NEO-MINOPHAGEN C [Concomitant]
     Indication: SPONDYLITIS
     Route: 042
     Dates: start: 20070607
  19. NEO-MINOPHAGEN C [Concomitant]
     Indication: EXTRADURAL ABSCESS
     Route: 042
     Dates: start: 20070607
  20. MINOCYCLINE HCL [Concomitant]
     Route: 065
     Dates: start: 20070611, end: 20070613
  21. COUGH, COLD, AND FLU THERAPIES (UNSPECIFIED) [Concomitant]
     Indication: VIRAL INFECTION
     Route: 048
     Dates: start: 20070531, end: 20070614
  22. ISEPACIN [Concomitant]
     Indication: VIRAL INFECTION
     Route: 051
     Dates: start: 20070410
  23. CILASTATIN SODIUM AND IMIPENEM [Concomitant]
     Route: 042
     Dates: start: 20070412, end: 20070507
  24. MODACIN [Concomitant]
     Route: 042
     Dates: start: 20070507

REACTIONS (1)
  - DRUG ERUPTION [None]
